FAERS Safety Report 7153179-5 (Version None)
Quarter: 2010Q4

REPORT INFORMATION
  Report Type: 
  Country: None (occurrence: None)
  Receive Date: 20101213
  Receipt Date: 20101202
  Transmission Date: 20110411
  Serious: Yes (Other)
  Sender: FDA-Public Use
  Company Number: JP-ELI_LILLY_AND_COMPANY-JP201012000745

PATIENT
  Sex: Male

DRUGS (2)
  1. GEMZAR [Suspect]
     Route: 042
  2. BRIPLATIN [Concomitant]
     Route: 042

REACTIONS (2)
  - BREAST MASS [None]
  - INFLAMMATORY CARCINOMA OF THE BREAST [None]
